FAERS Safety Report 18154288 (Version 5)
Quarter: 2020Q4

REPORT INFORMATION
  Report Type: Spontaneous
  Country: CA (occurrence: CA)
  Receive Date: 20200817
  Receipt Date: 20201210
  Transmission Date: 20210113
  Serious: Yes (Other)
  Sender: FDA-Public Use
  Company Number: CA-CELLTRION INC.-2018CA017981

PATIENT

DRUGS (44)
  1. INFLECTRA [Suspect]
     Active Substance: INFLIXIMAB-DYYB
     Dosage: 4.7 MG/KG EVERY 4 WEEKS (NEW PRESCRIPTION)
     Route: 042
  2. INFLECTRA [Suspect]
     Active Substance: INFLIXIMAB-DYYB
     Dosage: 370 MG, (EVERY 4 WEEKS)
     Route: 042
     Dates: start: 20180226, end: 20180522
  3. INFLECTRA [Suspect]
     Active Substance: INFLIXIMAB-DYYB
     Dosage: 370 MG,(EVERY 4 WEEKS)
     Route: 042
     Dates: start: 20190125, end: 20190125
  4. INFLECTRA [Suspect]
     Active Substance: INFLIXIMAB-DYYB
     Dosage: 370 MG,(EVERY 4 WEEKS)
     Route: 042
     Dates: start: 20190222, end: 20190222
  5. INFLECTRA [Suspect]
     Active Substance: INFLIXIMAB-DYYB
     Dosage: 370 MG,(EVERY 4 WEEKS)
     Route: 042
     Dates: start: 20190322, end: 20190322
  6. COUMADIN [Concomitant]
     Active Substance: WARFARIN SODIUM
     Dosage: 10 MG, 4 TIMES PER WEEK
  7. HYDROCORTISONE. [Concomitant]
     Active Substance: HYDROCORTISONE
     Indication: PREMEDICATION
     Dosage: 100 MG, UNK
     Route: 042
     Dates: start: 20190125
  8. HYDROCORTISONE. [Concomitant]
     Active Substance: HYDROCORTISONE
     Dosage: 100 MG, UNK
     Route: 042
     Dates: start: 20200221
  9. INFLECTRA [Suspect]
     Active Substance: INFLIXIMAB-DYYB
     Indication: COLITIS ULCERATIVE
     Dosage: 5 MG/KG 0, 2, 6 WEEKS, THEN EVERY 8 WEEKS,
     Route: 042
     Dates: start: 20171019, end: 20171019
  10. INFLECTRA [Suspect]
     Active Substance: INFLIXIMAB-DYYB
     Dosage: 5 MG/KG, (EVERY 4 WEEKS)
     Route: 042
     Dates: start: 20180615, end: 20180807
  11. INFLECTRA [Suspect]
     Active Substance: INFLIXIMAB-DYYB
     Dosage: 370 MG,(EVERY 4 WEEKS)
     Route: 042
     Dates: start: 20190906, end: 20190906
  12. INFLECTRA [Suspect]
     Active Substance: INFLIXIMAB-DYYB
     Dosage: 370 MG,(EVERY 4 WEEKS)
     Route: 042
     Dates: start: 20200124, end: 20200124
  13. INFLECTRA [Suspect]
     Active Substance: INFLIXIMAB-DYYB
     Dosage: 370 MG (EVERY 4 WEEKS)
     Route: 042
     Dates: start: 20200807, end: 20200807
  14. INFLECTRA [Suspect]
     Active Substance: INFLIXIMAB-DYYB
     Dosage: 370 MG, (EVERY 4 WEEKS)
     Route: 042
     Dates: start: 20201202
  15. COUMADIN [Concomitant]
     Active Substance: WARFARIN SODIUM
     Dosage: 7.5 MG, 4 TIMES PER WEEK
  16. COUMADIN [Concomitant]
     Active Substance: WARFARIN SODIUM
     Dosage: 10 MG, 3 TIMES PER WEEK
  17. COUMADIN [Concomitant]
     Active Substance: WARFARIN SODIUM
     Dosage: 10 MG, 4 TIMES A WEEK
     Route: 065
  18. HYDROCORTISONE. [Concomitant]
     Active Substance: HYDROCORTISONE
     Dosage: 100 MG
     Route: 042
     Dates: start: 20200612, end: 20200612
  19. INFLECTRA [Suspect]
     Active Substance: INFLIXIMAB-DYYB
     Dosage: 5 MG/KG EVERY 0, 2, 6 WEEKS, THEN EVERY 8 WEEKS
     Route: 042
     Dates: start: 20180126, end: 20180126
  20. INFLECTRA [Suspect]
     Active Substance: INFLIXIMAB-DYYB
     Dosage: 370 MG,(EVERY 4 WEEKS)
     Route: 042
     Dates: start: 20181102, end: 20181102
  21. INFLECTRA [Suspect]
     Active Substance: INFLIXIMAB-DYYB
     Dosage: 370 MG,(EVERY 4 WEEKS)
     Route: 042
     Dates: start: 20190125, end: 20190125
  22. ASACOL [Concomitant]
     Active Substance: MESALAMINE
     Dosage: 3 TABLETS 2X/DAY (4.8 G DAILY)
     Route: 065
     Dates: start: 201610
  23. HYDROCORTISONE. [Concomitant]
     Active Substance: HYDROCORTISONE
     Dosage: 100 MG
     Route: 042
     Dates: start: 20200807, end: 20200807
  24. INFLECTRA [Suspect]
     Active Substance: INFLIXIMAB-DYYB
     Dosage: 5 MG/KG 0, 2, 6 WEEKS, THEN EVERY 8 WEEKS
     Route: 042
     Dates: start: 20171201, end: 20171201
  25. INFLECTRA [Suspect]
     Active Substance: INFLIXIMAB-DYYB
     Dosage: 370 MG (EVERY 4 WEEKS)
     Route: 042
     Dates: start: 20180907, end: 20180907
  26. INFLECTRA [Suspect]
     Active Substance: INFLIXIMAB-DYYB
     Dosage: 370 MG,(EVERY 4 WEEKS)
     Route: 042
     Dates: start: 20200612, end: 20200612
  27. COUMADIN [Concomitant]
     Active Substance: WARFARIN SODIUM
     Dosage: 12.5 MG, 3 TIMES PER WEEK
  28. INFLECTRA [Suspect]
     Active Substance: INFLIXIMAB-DYYB
     Dosage: 370 MG (EVERY 4 WEEKS)
     Route: 042
     Dates: start: 20181002, end: 20181002
  29. INFLECTRA [Suspect]
     Active Substance: INFLIXIMAB-DYYB
     Dosage: 370 MG,(EVERY 4 WEEKS)
     Route: 042
     Dates: start: 20181102, end: 20181102
  30. INFLECTRA [Suspect]
     Active Substance: INFLIXIMAB-DYYB
     Dosage: 370 MG,(EVERY 4 WEEKS)
     Route: 042
     Dates: start: 20181130, end: 20181130
  31. INFLECTRA [Suspect]
     Active Substance: INFLIXIMAB-DYYB
     Dosage: 370 MG,(EVERY 4 WEEKS)
     Route: 042
     Dates: start: 20191004, end: 20191004
  32. INFLECTRA [Suspect]
     Active Substance: INFLIXIMAB-DYYB
     Dosage: 370 MG,(EVERY 4 WEEKS)
     Route: 042
     Dates: start: 20191101, end: 20191101
  33. INFLECTRA [Suspect]
     Active Substance: INFLIXIMAB-DYYB
     Dosage: 370 MG,(EVERY 4 WEEKS)
     Route: 042
     Dates: start: 20200221, end: 20200221
  34. CORTIMENT [Concomitant]
     Dosage: 1 DF(TABLET), 1X/DAY
     Route: 048
     Dates: start: 201707
  35. INFLECTRA [Suspect]
     Active Substance: INFLIXIMAB-DYYB
     Dosage: 5 MG/KG, (EVERY 4 WEEKS)
     Route: 042
     Dates: start: 20180323, end: 20180323
  36. INFLECTRA [Suspect]
     Active Substance: INFLIXIMAB-DYYB
     Dosage: 370 MG, (EVERY 4 WEEKS)
     Route: 042
     Dates: start: 20201030
  37. PREDNISONE. [Concomitant]
     Active Substance: PREDNISONE
     Dosage: 50 MG, UNK (TAPERED DOSE IN 2009)
     Route: 065
     Dates: start: 2009
  38. HYDROCORTISONE. [Concomitant]
     Active Substance: HYDROCORTISONE
     Dosage: 100 MG
     Route: 042
     Dates: start: 20201006, end: 20201006
  39. INFLECTRA [Suspect]
     Active Substance: INFLIXIMAB-DYYB
     Dosage: 370 MG, (EVERY 4 WEEKS)
     Route: 042
     Dates: start: 20200904, end: 20200904
  40. HYDROCORTISONE. [Concomitant]
     Active Substance: HYDROCORTISONE
     Dosage: 100 MG
     Route: 042
     Dates: start: 20200710, end: 20200710
  41. HYDROCORTISONE. [Concomitant]
     Active Substance: HYDROCORTISONE
     Dosage: 100 MG
     Route: 042
     Dates: start: 20201030, end: 20201030
  42. INFLECTRA [Suspect]
     Active Substance: INFLIXIMAB-DYYB
     Dosage: 370 MG (EVERY 4 WEEKS)
     Route: 042
     Dates: start: 20200710, end: 20200710
  43. INFLECTRA [Suspect]
     Active Substance: INFLIXIMAB-DYYB
     Dosage: 370 MG, (EVERY 4 WEEKS)
     Route: 042
     Dates: start: 20201006
  44. BUDESONIDE. [Concomitant]
     Active Substance: BUDESONIDE
     Dosage: UNK
     Route: 065
     Dates: start: 201707

REACTIONS (11)
  - Hordeolum [Recovering/Resolving]
  - Off label use [Unknown]
  - Product use issue [Unknown]
  - Blood pressure fluctuation [Unknown]
  - Condition aggravated [Recovered/Resolved]
  - Lower respiratory tract infection [Unknown]
  - Drug level below therapeutic [Not Recovered/Not Resolved]
  - Heart rate decreased [Unknown]
  - Blood pressure diastolic decreased [Unknown]
  - Faecal calprotectin increased [Not Recovered/Not Resolved]
  - International normalised ratio decreased [Unknown]

NARRATIVE: CASE EVENT DATE: 201801
